FAERS Safety Report 17432886 (Version 1)
Quarter: 2020Q1

REPORT INFORMATION
  Report Type: Report from Study
  Country: None (occurrence: DK)
  Receive Date: 20200219
  Receipt Date: 20200219
  Transmission Date: 20200409
  Serious: Yes (Other)
  Sender: FDA-Public Use
  Company Number: DK-ABBVIE-20P-044-3281934-00

PATIENT
  Sex: Male

DRUGS (2)
  1. CYPROTERONE ACETATE [Suspect]
     Active Substance: CYPROTERONE ACETATE
     Indication: ANTIANDROGEN THERAPY
     Dosage: 300 MILLIGRAM
     Route: 065
  2. LEUPRORELIN [Suspect]
     Active Substance: LEUPROLIDE ACETATE
     Indication: ANTIANDROGEN THERAPY
     Dosage: 11.25 MICROGRAM
     Route: 065

REACTIONS (2)
  - Therapeutic response unexpected [Unknown]
  - Osteoporosis [Unknown]
